FAERS Safety Report 18619186 (Version 1)
Quarter: 2020Q4

REPORT INFORMATION
  Report Type: Report from Study
  Country: US (occurrence: US)
  Receive Date: 20201215
  Receipt Date: 20201215
  Transmission Date: 20210114
  Serious: Yes (Death, Other)
  Sender: FDA-Public Use
  Company Number: US-PFIZER INC-2020492985

PATIENT

DRUGS (5)
  1. ETIZOLAM [Suspect]
     Active Substance: ETIZOLAM
     Dosage: UNK
  2. DELORAZEPAM [Suspect]
     Active Substance: DELORAZEPAM
     Dosage: UNK
  3. FLUBROMAZOLAM [Suspect]
     Active Substance: FLUBROMAZOLAM
     Dosage: UNK
  4. LORAZEPAM. [Suspect]
     Active Substance: LORAZEPAM
     Dosage: UNK
  5. DICLAZEPAM [Suspect]
     Active Substance: 2-CHLORODIAZEPAM
     Dosage: UNK

REACTIONS (3)
  - Drug abuse [Fatal]
  - Toxicity to various agents [Fatal]
  - Overdose [Fatal]
